FAERS Safety Report 22202253 (Version 1)
Quarter: 2023Q2

REPORT INFORMATION
  Report Type: Spontaneous
  Country: CA (occurrence: CA)
  Receive Date: 20230412
  Receipt Date: 20230412
  Transmission Date: 20230722
  Serious: Yes (Life-Threatening)
  Sender: FDA-Public Use
  Company Number: CA-BAYER-2023A047835

PATIENT
  Age: 79 Year
  Sex: Male
  Weight: 97.506 kg

DRUGS (1)
  1. GADOBUTROL [Suspect]
     Active Substance: GADOBUTROL
     Dosage: 10 ML, ONCE
     Route: 042

REACTIONS (8)
  - Feeling hot [None]
  - Pruritus [None]
  - Erythema [None]
  - Dizziness [None]
  - Seizure [None]
  - Abdominal pain [None]
  - Abdominal distension [None]
  - SARS-CoV-2 test positive [None]
